FAERS Safety Report 5457110-X (Version None)
Quarter: 2007Q3

REPORT INFORMATION
  Report Type: 
  Country: None (occurrence: None)
  Receive Date: 20070918
  Receipt Date: 20070108
  Transmission Date: 20080115
  Serious: No
  Sender: FDA-Public Use
  Company Number: US-ASTRAZENECA-2007UW00404

PATIENT
  Age: 61 Year
  Sex: Female

DRUGS (7)
  1. SEROQUEL [Suspect]
     Route: 048
  2. KLONOPIN [Suspect]
  3. GEODON [Suspect]
  4. CYMBALTA [Suspect]
  5. TRAZODONE HCL [Suspect]
  6. LUNESTA [Suspect]
  7. PROVIGIL [Suspect]

REACTIONS (1)
  - FATIGUE [None]
